FAERS Safety Report 5176516-X (Version None)
Quarter: 2006Q4

REPORT INFORMATION
  Report Type: 
  Country: None (occurrence: None)
  Receive Date: 20061215
  Receipt Date: 20061212
  Transmission Date: 20070319
  Serious: Yes (Hospitalization)
  Sender: FDA-Public Use
  Company Number: HU-BRISTOL-MYERS SQUIBB COMPANY-13611835

PATIENT
  Age: 63 Year
  Sex: Female
  Weight: 64 kg

DRUGS (2)
  1. COAPROVEL TABS 300MG/12.5MG [Suspect]
     Dosage: STARTED ON 29-MAR-2006 AND WITHDRAWN ON UNKNOWN DATE. RESTARTED 26-JUL-2006 TO 31-JUL-2006.
     Route: 048
     Dates: start: 20060329, end: 20060731
  2. LETROX [Concomitant]

REACTIONS (2)
  - LOCAL SWELLING [None]
  - SKIN NODULE [None]
